FAERS Safety Report 24327427 (Version 1)
Quarter: 2024Q3

REPORT INFORMATION
  Report Type: Spontaneous
  Country: US (occurrence: None)
  Receive Date: 20240916
  Receipt Date: 20240916
  Transmission Date: 20241016
  Serious: Yes (Hospitalization)
  Sender: Public
  Company Number: None

PATIENT
  Age: 66 Year
  Sex: Female

DRUGS (11)
  1. DUPIXENT [Suspect]
     Active Substance: DUPILUMAB
     Indication: Asthma
     Dosage: 200MG/1.14ML 2 WEEKS SUBCUTANEOUS
     Route: 058
     Dates: start: 20200513
  2. ALBUTEROL HFA INH [Concomitant]
  3. BUDESONIDE [Concomitant]
  4. DALIRESP [Concomitant]
     Active Substance: ROFLUMILAST
  5. DILAUDID [Concomitant]
     Active Substance: HYDROMORPHONE HYDROCHLORIDE
  6. IPRATROPIUM INHAL SOLN [Concomitant]
  7. LASIX [Concomitant]
     Active Substance: FUROSEMIDE
  8. LIDOCAINE PAIN RELIEF [Concomitant]
     Active Substance: LIDOCAINE
  9. MONTELUKAST [Concomitant]
     Active Substance: MONTELUKAST SODIUM
  10. MUCINEX [Concomitant]
     Active Substance: GUAIFENESIN
  11. NITROSTAT [Concomitant]
     Active Substance: NITROGLYCERIN

REACTIONS (2)
  - Splenic thrombosis [None]
  - Asthma [None]
